FAERS Safety Report 11646742 (Version 2)
Quarter: 2016Q2

REPORT INFORMATION
  Report Type: Spontaneous
  Country: US (occurrence: US)
  Receive Date: 20151020
  Receipt Date: 20160429
  Transmission Date: 20160815
  Serious: No
  Sender: FDA-Public Use
  Company Number: US-ROCHE-1626804

PATIENT
  Sex: Female
  Weight: 55.39 kg

DRUGS (4)
  1. ESBRIET [Suspect]
     Active Substance: PIRFENIDONE
     Route: 048
  2. CIPRO [Concomitant]
     Active Substance: CIPROFLOXACIN HYDROCHLORIDE
     Route: 065
  3. ESBRIET [Suspect]
     Active Substance: PIRFENIDONE
     Dosage: TAKE 2 CAPSULES BY MOUTH THREE TIMES A DAY WITH FOOD.
     Route: 048
     Dates: start: 20150430
  4. ESBRIET [Suspect]
     Active Substance: PIRFENIDONE
     Indication: IDIOPATHIC PULMONARY FIBROSIS
     Dosage: TOTAL: 2403 MG DAILY 3 CAPS PO TID
     Route: 048
     Dates: start: 20150430

REACTIONS (9)
  - Cystitis [Unknown]
  - Asthenia [Unknown]
  - Abdominal discomfort [Unknown]
  - Fatigue [Unknown]
  - Pain [Unknown]
  - Decreased appetite [Unknown]
  - Weight decreased [Unknown]
  - Nausea [Unknown]
  - Dizziness [Unknown]
